FAERS Safety Report 4416221-8 (Version None)
Quarter: 2004Q3

REPORT INFORMATION
  Report Type: 
  Country: None (occurrence: None)
  Receive Date: 20040803
  Receipt Date: 20040719
  Transmission Date: 20050211
  Serious: Yes (Death)
  Sender: FDA-Public Use
  Company Number: US-JNJFOC-20040404989

PATIENT
  Age: 75 Year
  Sex: Female
  Weight: 44.1804 kg

DRUGS (34)
  1. DURAGESIC [Suspect]
     Indication: PAIN
     Dosage: 100 UG/HR, TRANSDERMAL; 125 UG/HR, 1 IN 72 HOUR, TRANSDERMAL; 100 UG/HR, TRANSDERMAL
     Route: 062
     Dates: end: 20040301
  2. DURAGESIC [Suspect]
     Indication: PAIN
     Dosage: 100 UG/HR, TRANSDERMAL; 125 UG/HR, 1 IN 72 HOUR, TRANSDERMAL; 100 UG/HR, TRANSDERMAL
     Route: 062
     Dates: start: 20040301
  3. ANTICOAGULANT THERAPY (ANTICOAGULANT CITRATE DEXTROSE) [Concomitant]
  4. MORPHINE (MORPHINE) LIQUID [Concomitant]
  5. ANTI-ANXIETY MEDICATION (ANXIOLYTICS) [Concomitant]
  6. PREMARIN H-C VAGINAL CREAM [Concomitant]
  7. RANITIDINE [Concomitant]
  8. CARBIDOPA/LEVODOPA (CARBIDOPA) TABLETS [Concomitant]
  9. ISOSORBIDE (ISOSORBIDE) TABLETS [Concomitant]
  10. MORPHINE  (MORPHINE) TABLETS [Concomitant]
  11. NEURONTIN (GABAPENTI) CAPSULES [Concomitant]
  12. LORAZEPAM (LORAZEPAM) TABLETS [Concomitant]
  13. ASPIRIN [Concomitant]
  14. CYANOCOBOLAMIN (CYANOCOBALAMIN) [Concomitant]
  15. ACETAMINOPHEN (PARACETAMOL) CAPLET [Concomitant]
  16. TRAZODONE (TRAZODONE) TABLETS [Concomitant]
  17. CITRUCIL S/F ORANGE POW (METHYLCELLULOSE) LIQUID [Concomitant]
  18. LACTASE (TILACTASE) TABLETS [Concomitant]
  19. PLAVIX [Concomitant]
  20. LEVOTHROID (LEVOTHYROXINE SODIUM) TABLETS [Concomitant]
  21. DILANTN (PHENYTOIN SODIUM) CAPSULES [Concomitant]
  22. PANCREASE (PANCRELIPASE) CAPSULES [Concomitant]
  23. CELEBREX [Concomitant]
  24. CALCIUM CARB (CALCIUM) TABLETS [Concomitant]
  25. PAROXETINE (PAROXETINE) TABLETS [Concomitant]
  26. NITROGLYCERINE (GLYCERYL TRINITRATE) TABLETS [Concomitant]
  27. DIPHENOXYLATE/ ATROPINE (DIPHENOXYLATE W; ATROPINE) [Concomitant]
  28. SIMETHICONE (DIMETICONE, ACTIVATED) TABLETS [Concomitant]
  29. ALUMINUM HYDROXIDE (ALUMINUM HYDROXIDE/MAGNESIUM HYDROXIDE/SIMETHICONE [Concomitant]
  30. REFRESH TEARS DROP (TEARS PLUS) DROPS [Concomitant]
  31. BENGAY VANISHING SCENT (ANALGESIC BALM) [Concomitant]
  32. COMBIVENT [Concomitant]
  33. MIACALCIN (CALCITONIN, SALMON) SPRAY [Concomitant]
  34. OXYGEN (OXYGEN) [Concomitant]

REACTIONS (9)
  - BRAIN DAMAGE [None]
  - CEREBRAL HAEMORRHAGE [None]
  - COMA [None]
  - CONTUSION [None]
  - FALL [None]
  - MYDRIASIS [None]
  - SKIN LACERATION [None]
  - ULCER HAEMORRHAGE [None]
  - WEIGHT DECREASED [None]
